FAERS Safety Report 4318006-X (Version None)
Quarter: 2004Q1

REPORT INFORMATION
  Report Type: 
  Country: None (occurrence: None)
  Receive Date: 20040316
  Receipt Date: 20030714
  Transmission Date: 20041129
  Serious: Yes (Death, Life-Threatening, Hospitalization)
  Sender: FDA-Public Use
  Company Number: DE-BRISTOL-MYERS SQUIBB COMPANY-12324182

PATIENT
  Age: 54 Year
  Sex: Male
  Weight: 82 kg

DRUGS (2)
  1. CISPLATIN [Suspect]
     Indication: BLADDER CANCER
     Dates: start: 20030308, end: 20030515
  2. GEMCITABINE [Suspect]
     Indication: BLADDER CANCER
     Dates: start: 20030307, end: 20030528

REACTIONS (3)
  - BLADDER CANCER [None]
  - THROMBOCYTOPENIA [None]
  - VOMITING [None]
